FAERS Safety Report 19536412 (Version 1)
Quarter: 2021Q3

REPORT INFORMATION
  Report Type: Spontaneous
  Country: US (occurrence: US)
  Receive Date: 20210714
  Receipt Date: 20210714
  Transmission Date: 20211014
  Serious: Yes (Life-Threatening)
  Sender: FDA-Public Use
  Company Number: None

PATIENT
  Age: 71 Year
  Sex: Male

DRUGS (1)
  1. RIVAROXABAN (RIVAROXABAN 20MG TAB) [Suspect]
     Active Substance: RIVAROXABAN
     Indication: ATRIAL FIBRILLATION
     Route: 048
     Dates: start: 20210219, end: 20210415

REACTIONS (5)
  - Thrombocytopenia [None]
  - Blood loss anaemia [None]
  - Transfusion [None]
  - Gastric haemorrhage [None]
  - Cirrhosis alcoholic [None]

NARRATIVE: CASE EVENT DATE: 20210415
